FAERS Safety Report 4320250-2 (Version None)
Quarter: 2004Q1

REPORT INFORMATION
  Report Type: 
  Country: None (occurrence: None)
  Receive Date: 20040317
  Receipt Date: 19990608
  Transmission Date: 20041129
  Serious: Yes (Hospitalization, Other)
  Sender: FDA-Public Use
  Company Number: 1199844256

PATIENT
  Age: 60 Year
  Sex: Female

DRUGS (9)
  1. CIPROFLOXACIN HCL [Suspect]
     Indication: BRONCHITIS
     Dosage: 600 MG, TOTAL DAILY, ORAL
     Route: 048
     Dates: start: 19980929, end: 19981027
  2. ISEPAMICIN SULFATE [Concomitant]
  3. CODEINE PHOSPHATE [Concomitant]
  4. LYSOZYME CHLORIDE [Concomitant]
  5. ROXATIDINE ACETATE HCL [Concomitant]
  6. IRSOGLADINE MALEATE [Concomitant]
  7. DOMPERIDONE [Concomitant]
  8. VITAMIN B COMPLEX CAP [Concomitant]
  9. UBIDECARENONE [Concomitant]

REACTIONS (8)
  - ABDOMINAL DISCOMFORT [None]
  - ANAEMIA [None]
  - CARDIAC FAILURE [None]
  - CYANOSIS [None]
  - INTERSTITIAL LUNG DISEASE [None]
  - PNEUMONITIS [None]
  - RESPIRATORY DISTRESS [None]
  - SPUTUM RETENTION [None]
